FAERS Safety Report 20922039 (Version 2)
Quarter: 2022Q2

REPORT INFORMATION
  Report Type: Spontaneous
  Country: US (occurrence: US)
  Receive Date: 20220607
  Receipt Date: 20220630
  Transmission Date: 20220721
  Serious: No
  Sender: FDA-Public Use
  Company Number: US-LEO Pharma-342745

PATIENT
  Sex: Male

DRUGS (1)
  1. ADBRY [Suspect]
     Active Substance: TRALOKINUMAB-LDRM
     Indication: Dermatitis atopic
     Dosage: THE INITIAL DOSE OF ADBRY?  WAS GIVEN WITH 4 INJECTIONS FOLLOWED BY 2 INJECTIONS EVERY TWO WEEKS
     Dates: start: 20220310

REACTIONS (1)
  - Photosensitivity reaction [Recovered/Resolved]
